FAERS Safety Report 9537144 (Version 5)
Quarter: 2013Q4

REPORT INFORMATION
  Report Type: Report from Study
  Country: US (occurrence: US)
  Receive Date: 20130919
  Receipt Date: 20131118
  Transmission Date: 20140711
  Serious: Yes (Death, Hospitalization, Other)
  Sender: FDA-Public Use
  Company Number: US-BAYER-2013-107665

PATIENT
  Age: 72 Year
  Sex: Male

DRUGS (3)
  1. STIVARGA [Suspect]
     Indication: RECTAL CANCER
     Dosage: 4 TABLETS DAILY
     Route: 048
     Dates: start: 20130831
  2. STIVARGA [Suspect]
     Indication: RECTAL CANCER
     Dosage: 3 TABLETS PER DAY (REDUCED DOSAGE)
     Route: 048
     Dates: end: 20131008
  3. STIVARGA [Suspect]
     Indication: RECTAL CANCER
     Dosage: 3 TABLETS PER DAY (REDUCED DOSAGE)
     Route: 048
     Dates: start: 20131009, end: 20131025

REACTIONS (24)
  - Constipation [Recovering/Resolving]
  - Abdominal pain [None]
  - Musculoskeletal pain [Recovering/Resolving]
  - Back pain [None]
  - Dysphonia [Not Recovered/Not Resolved]
  - Dry mouth [Not Recovered/Not Resolved]
  - Abdominal pain upper [Not Recovered/Not Resolved]
  - Chest pain [Not Recovered/Not Resolved]
  - Hypoaesthesia [Not Recovered/Not Resolved]
  - Pain in extremity [Not Recovered/Not Resolved]
  - Skin exfoliation [Not Recovered/Not Resolved]
  - Incorrect dose administered [None]
  - Musculoskeletal chest pain [Recovering/Resolving]
  - Fatigue [Not Recovered/Not Resolved]
  - Dry skin [Not Recovered/Not Resolved]
  - Constipation [None]
  - Abdominal pain [None]
  - Abdominal pain [Recovering/Resolving]
  - Pain in jaw [Recovered/Resolved]
  - Cholecystitis [None]
  - Nausea [Not Recovered/Not Resolved]
  - Decreased appetite [Not Recovered/Not Resolved]
  - Ocular icterus [None]
  - Death [Fatal]
